FAERS Safety Report 8250731-0 (Version None)
Quarter: 2012Q1

REPORT INFORMATION
  Report Type: 
  Country: None (occurrence: None)
  Receive Date: 20120328
  Receipt Date: 20120315
  Transmission Date: 20120608
  Serious: Yes (Hospitalization)
  Sender: FDA-Public Use
  Company Number: CA-007740

PATIENT
  Age: 85 Year
  Sex: Male

DRUGS (7)
  1. LOPRESSOR [Concomitant]
  2. CLOPIDOGREL [Suspect]
  3. PANTOPRAZOLE SODIUM [Concomitant]
  4. BICALUTAMIDE [Concomitant]
  5. FIRMAGON [Suspect]
     Indication: PROSTATE CANCER
     Dosage: 240 MG, 80 MG
     Dates: start: 20110705, end: 20110705
  6. ASPIRIN [Concomitant]
  7. TYLENOL [Concomitant]

REACTIONS (4)
  - FATIGUE [None]
  - SOMNOLENCE [None]
  - HEADACHE [None]
  - TYPE 2 DIABETES MELLITUS [None]
